FAERS Safety Report 18246993 (Version 1)
Quarter: 2020Q3

REPORT INFORMATION
  Report Type: Spontaneous
  Country: LV (occurrence: LV)
  Receive Date: 20200909
  Receipt Date: 20200909
  Transmission Date: 20201103
  Serious: Yes (Other)
  Sender: FDA-Public Use
  Company Number: LV-ACCORD-199865

PATIENT
  Age: 71 Year
  Sex: Female
  Weight: 105 kg

DRUGS (1)
  1. OLMESARTAN MEDOXOMIL, AMLODIPINE ACCORD [Suspect]
     Active Substance: AMLODIPINE BESYLATE\OLMESARTAN MEDOXOMIL
     Indication: HYPERTENSION
     Dosage: STRENGTH: 40 MG / 5 MG
     Route: 048
     Dates: start: 20200720, end: 20200722

REACTIONS (2)
  - Asthenia [Recovered/Resolved]
  - Syncope [Recovered/Resolved]

NARRATIVE: CASE EVENT DATE: 20200720
